FAERS Safety Report 15136516 (Version 2)
Quarter: 2018Q3

REPORT INFORMATION
  Report Type: Report from Study
  Country: KR (occurrence: KR)
  Receive Date: 20180712
  Receipt Date: 20180731
  Transmission Date: 20181010
  Serious: Yes (Hospitalization)
  Sender: FDA-Public Use
  Company Number: KR-BAYER-2018-126333

PATIENT
  Age: 57 Year
  Sex: Female
  Weight: 50 kg

DRUGS (21)
  1. STIVARGA [Suspect]
     Active Substance: REGORAFENIB
     Indication: COLORECTAL CANCER
     Dosage: 160 MG DAILY
     Route: 048
     Dates: start: 20180222, end: 20180302
  2. METOCLOPRAMIDE. [Concomitant]
     Active Substance: METOCLOPRAMIDE
     Dosage: 30 MG
     Route: 048
     Dates: start: 20180222
  3. FEBUXOSTAT. [Concomitant]
     Active Substance: FEBUXOSTAT
     Dosage: 40 MG
     Route: 048
     Dates: start: 20180228
  4. ZOLPIDEM TARTRATE. [Concomitant]
     Active Substance: ZOLPIDEM TARTRATE
     Dosage: 5.25 MG
     Route: 048
     Dates: start: 20180322
  5. LOPERAMIDE HYDROCHLORIDE. [Concomitant]
     Active Substance: LOPERAMIDE HYDROCHLORIDE
     Dosage: 6 MG
     Route: 048
     Dates: start: 20180222
  6. CYCLOSPORINE. [Concomitant]
     Active Substance: CYCLOSPORINE
     Dosage: 100 MG
     Route: 048
     Dates: start: 20180206
  7. DEFLAZACORT [Concomitant]
     Active Substance: DEFLAZACORT
     Dosage: 9 MG
     Route: 048
     Dates: start: 20170917, end: 20180309
  8. ALFACALCIDOL [Concomitant]
     Active Substance: ALFACALCIDOL
     Dosage: 0.5 MCG
     Dates: start: 20170125
  9. DEFLAZACORT [Concomitant]
     Active Substance: DEFLAZACORT
     Dosage: 6 MG
     Route: 048
     Dates: start: 20180310
  10. TWYNSTA [Concomitant]
     Active Substance: AMLODIPINE BESYLATE\TELMISARTAN
     Dosage: 1 TABLET
     Route: 048
     Dates: start: 20180313
  11. DULOXETINE HYDROCHLORIDE. [Concomitant]
     Active Substance: DULOXETINE HYDROCHLORIDE
     Dosage: 30 MG
     Route: 048
     Dates: start: 20180322
  12. METOCLOPRAMIDE. [Concomitant]
     Active Substance: METOCLOPRAMIDE
     Dosage: 15 MG
     Route: 048
     Dates: start: 20180324, end: 20180327
  13. BENZYDAMINE HYDROCHLORIDE [Concomitant]
     Active Substance: BENZYDAMINE HYDROCHLORIDE
     Dosage: UNK
     Dates: start: 20180222
  14. FREAMINE III NOS [Concomitant]
     Active Substance: AMINO ACIDS
     Dosage: 9 MG
     Route: 048
     Dates: start: 20180302, end: 20180302
  15. TRAMADOL HYDROCHLORIDE. [Concomitant]
     Active Substance: TRAMADOL HYDROCHLORIDE
     Dosage: 50 MG
     Route: 042
     Dates: start: 20180317, end: 20180327
  16. FLUVASTATIN SODIUM. [Concomitant]
     Active Substance: FLUVASTATIN SODIUM
     Dosage: 80 MG
     Route: 048
     Dates: start: 20171015
  17. PROPACETAMOL HYDROCHLORIDE [Concomitant]
     Active Substance: PROPACETAMOL HYDROCHLORIDE
     Dosage: 1000 MG
     Route: 042
     Dates: start: 20180311
  18. MEGESTROL ACETATE. [Concomitant]
     Active Substance: MEGESTROL ACETATE
     Dosage: 10 ML
     Route: 048
     Dates: start: 20180314, end: 20180326
  19. KETOPROFEN. [Concomitant]
     Active Substance: KETOPROFEN
     Dosage: UNK
     Dates: start: 20180316, end: 20180326
  20. GABAPENTIN. [Concomitant]
     Active Substance: GABAPENTIN
     Dosage: 300 MG
     Route: 048
     Dates: start: 20180322, end: 20180327
  21. DULOXETINE HYDROCHLORIDE. [Concomitant]
     Active Substance: DULOXETINE HYDROCHLORIDE

REACTIONS (1)
  - Acute kidney injury [Recovered/Resolved]

NARRATIVE: CASE EVENT DATE: 20180309
